FAERS Safety Report 10593315 (Version 2)
Quarter: 2014Q4

REPORT INFORMATION
  Report Type: Spontaneous
  Country: US (occurrence: US)
  Receive Date: 20141119
  Receipt Date: 20141215
  Transmission Date: 20150529
  Serious: No
  Sender: FDA-Public Use
  Company Number: US-SHIRE-US201407535

PATIENT
  Age: 16 Year
  Sex: Male

DRUGS (1)
  1. VYVANSE [Suspect]
     Active Substance: LISDEXAMFETAMINE DIMESYLATE
     Indication: PRODUCT USED FOR UNKNOWN INDICATION
     Dosage: 30 MG, 1X/DAY:QD
     Route: 048
     Dates: start: 201410

REACTIONS (6)
  - Disturbance in social behaviour [Unknown]
  - Fatigue [Unknown]
  - Agitation [Unknown]
  - Flat affect [Unknown]
  - Restlessness [Unknown]
  - Anger [Unknown]

NARRATIVE: CASE EVENT DATE: 2014
